FAERS Safety Report 8233510 (Version 2)
Quarter: 2012Q4

REPORT INFORMATION
  Report Type: 
  Country: US (occurrence: US)
  Receive Date: 20111107
  Receipt Date: 20121107
  Transmission Date: 20130627
  Serious: No
  Sender: FDA-Public Use
  Company Number: US-ABBOTT-10P-163-0635782-00

PATIENT
  Sex: Female
  Weight: 61.29 kg

DRUGS (4)
  1. TRICOR [Suspect]
     Indication: BLOOD CHOLESTEROL
     Dates: end: 2007
  2. COUMADIN [Suspect]
     Indication: FACTOR V LEIDEN MUTATION
     Dates: end: 2007
  3. VIT [Concomitant]
     Indication: PRODUCT USED FOR UNKNOWN INDICATION
  4. PROTONIX [Concomitant]
     Indication: PRODUCT USED FOR UNKNOWN INDICATION

REACTIONS (1)
  - International normalised ratio fluctuation [Recovered/Resolved]
